FAERS Safety Report 6509224-0 (Version None)
Quarter: 2009Q4

REPORT INFORMATION
  Report Type: 
  Country: None (occurrence: None)
  Receive Date: 20091221
  Receipt Date: 20091207
  Transmission Date: 20100525
  Serious: Yes (Other)
  Sender: FDA-Public Use
  Company Number: DE-MYLANLABS-2009S1021088

PATIENT
  Age: 48 Year
  Sex: Female
  Weight: 60 kg

DRUGS (3)
  1. SUMATRIPTAN [Suspect]
     Indication: MIGRAINE
     Route: 048
     Dates: start: 20091003
  2. REMIFEMIN [Interacting]
     Indication: MENOPAUSAL SYMPTOMS
     Dosage: DAILY DOSE: 2 DF DOSAGE FORM EVERY DAYS
     Route: 048
     Dates: start: 20090921, end: 20091003
  3. THYRONAJOD [Concomitant]
     Indication: THYROID DISORDER
     Dosage: DAILY DOSE: 1 DF DOSAGE FORM EVERY DAYS
     Route: 048

REACTIONS (8)
  - DRUG INEFFECTIVE [None]
  - DRUG INTERACTION [None]
  - DYSPNOEA [None]
  - FLUSHING [None]
  - HYPERAESTHESIA [None]
  - PAIN [None]
  - PALPITATIONS [None]
  - RESTLESSNESS [None]
